FAERS Safety Report 7386377-6 (Version None)
Quarter: 2011Q1

REPORT INFORMATION
  Report Type: 
  Country: None (occurrence: None)
  Receive Date: 20110331
  Receipt Date: 20110321
  Transmission Date: 20110831
  Serious: Yes (Hospitalization)
  Sender: FDA-Public Use
  Company Number: PHHY2011US19846

PATIENT
  Sex: Female
  Weight: 61.8 kg

DRUGS (17)
  1. ULTRACET [Concomitant]
     Dosage: UNK
     Dates: start: 20110308
  2. CARDIZEM [Concomitant]
     Dosage: 180 MG, UNK
     Dates: start: 20110308
  3. COLACE [Concomitant]
     Dosage: UNK
     Dates: start: 20110308
  4. PROTONIX [Concomitant]
     Dosage: 40, UNK
     Dates: start: 20110308
  5. VITAMIN B6 [Concomitant]
     Dosage: 50, UNK
     Dates: start: 20110308
  6. DIGOXIN [Concomitant]
     Dosage: UNK
     Dates: start: 20110308
  7. FLONASE [Concomitant]
     Dosage: UNK
     Dates: start: 20110308
  8. MAGNESIUM CHLORIDE [Concomitant]
     Dosage: UNK
     Dates: start: 20110308
  9. SYNTHROID [Concomitant]
     Dosage: 7.5, UNK
     Dates: start: 20110308
  10. ALLOPURINOL [Concomitant]
     Dosage: UNK
     Dates: start: 20110308
  11. VITAMIN B-12 [Concomitant]
     Dosage: UNK, MONTHLY
     Dates: start: 20110308
  12. EXJADE [Suspect]
     Indication: MYELODYSPLASTIC SYNDROME
     Dosage: 1500 MG, QD
     Route: 048
     Dates: start: 20070101
  13. FOLIC ACID [Concomitant]
     Dosage: UNK
     Dates: start: 20110308
  14. KONSYL [Concomitant]
     Dosage: UNK
     Dates: start: 20110308
  15. GLIMEPIRIDE [Concomitant]
     Dosage: UNK
     Dates: start: 20110308
  16. NITROGLYCERIN [Concomitant]
     Dosage: UNK
     Dates: start: 20110308
  17. ONE A DAY                          /02262701/ [Concomitant]
     Dosage: UNK
     Dates: start: 20110308

REACTIONS (7)
  - MOTOR DYSFUNCTION [None]
  - INTRACRANIAL ANEURYSM [None]
  - CONFUSIONAL STATE [None]
  - CEREBROVASCULAR ACCIDENT [None]
  - MUSCULAR WEAKNESS [None]
  - HEADACHE [None]
  - FATIGUE [None]
